FAERS Safety Report 5534188-6 (Version None)
Quarter: 2007Q4

REPORT INFORMATION
  Report Type: 
  Country: None (occurrence: None)
  Receive Date: 20071205
  Receipt Date: 20071129
  Transmission Date: 20080405
  Serious: Yes (Other)
  Sender: FDA-Public Use
  Company Number: JP-AVENTIS-200713268JP

PATIENT
  Age: 80 Year
  Sex: Male

DRUGS (1)
  1. LASIX [Suspect]

REACTIONS (1)
  - PEMPHIGOID [None]
